FAERS Safety Report 6540663-8 (Version None)
Quarter: 2010Q1

REPORT INFORMATION
  Report Type: 
  Country: None (occurrence: None)
  Receive Date: 20100118
  Receipt Date: 20100111
  Transmission Date: 20100710
  Serious: Yes (Death, Life-Threatening, Hospitalization, Other)
  Sender: FDA-Public Use
  Company Number: BR-ELI_LILLY_AND_COMPANY-BR200912000387

PATIENT
  Sex: Female
  Weight: 60 kg

DRUGS (3)
  1. FORTEO [Suspect]
     Indication: OSTEOPOROSIS
     Dosage: 20 UG, DAILY (1/D)
     Route: 058
     Dates: start: 20090801
  2. MESACOL [Concomitant]
     Indication: INTESTINAL FUNCTIONAL DISORDER
     Dosage: 30 MG, 4/D
     Route: 065
  3. CAPTOPRIL [Concomitant]
     Indication: HYPERTENSION
     Dosage: 25 MG, DAILY (1/D)
     Route: 065

REACTIONS (8)
  - ACUTE RESPIRATORY FAILURE [None]
  - CARDIAC ARREST [None]
  - COMA [None]
  - DIABETES MELLITUS [None]
  - FEMUR FRACTURE [None]
  - HYPOGLYCAEMIA [None]
  - PULMONARY EMBOLISM [None]
  - RENAL CYST [None]
